FAERS Safety Report 16831647 (Version 1)
Quarter: 2019Q4

REPORT INFORMATION
  Report Type: Spontaneous
  Country: US (occurrence: US)
  Receive Date: 20190919
  Receipt Date: 20190919
  Transmission Date: 20200122
  Serious: Yes (Hospitalization)
  Sender: FDA-Public Use
  Company Number: None

PATIENT
  Age: 68 Year
  Sex: Female

DRUGS (13)
  1. ATORVASTATIN [Concomitant]
     Active Substance: ATORVASTATIN
     Dates: start: 20190621
  2. COUMADIN [Concomitant]
     Active Substance: WARFARIN SODIUM
     Dates: start: 20190621
  3. GABAPENTIN. [Concomitant]
     Active Substance: GABAPENTIN
     Dates: start: 20190506
  4. SPIRIVA [Concomitant]
     Active Substance: TIOTROPIUM BROMIDE MONOHYDRATE
     Dates: start: 20190620
  5. WARFARIN [Concomitant]
     Active Substance: WARFARIN
     Dates: start: 20190329
  6. HYQVIA [Suspect]
     Active Substance: HUMAN IMMUNOGLOBULIN G\HYALURONIDASE RECOMBINANT HUMAN
     Indication: IMMUNODEFICIENCY COMMON VARIABLE
     Route: 058
     Dates: start: 20190626
  7. PROVENTIL [Concomitant]
     Active Substance: ALBUTEROL
     Dates: start: 20190620
  8. ADVAIR HFA [Concomitant]
     Active Substance: FLUTICASONE PROPIONATE\SALMETEROL XINAFOATE
     Dates: start: 20190620
  9. PREDNISONE. [Concomitant]
     Active Substance: PREDNISONE
     Dates: start: 20190905
  10. VIT D [Concomitant]
     Active Substance: VITAMIN D NOS
     Dates: start: 20190621
  11. VITAMIN B12 [Concomitant]
     Active Substance: CYANOCOBALAMIN
     Dates: start: 20190621
  12. CLOBETASOL [Concomitant]
     Active Substance: CLOBETASOL
     Dates: start: 20190823
  13. MULTIPLE VIT [Concomitant]
     Dates: start: 20190621

REACTIONS (1)
  - Blood test abnormal [None]
